FAERS Safety Report 25773276 (Version 1)
Quarter: 2025Q3

REPORT INFORMATION
  Report Type: Spontaneous
  Country: US (occurrence: None)
  Receive Date: 20250905
  Receipt Date: 20250905
  Transmission Date: 20251020
  Serious: Yes (Hospitalization)
  Sender: FDA-CTU
  Company Number: None

PATIENT
  Sex: Female
  Weight: 108 kg

DRUGS (12)
  1. TACROLIMUS [Suspect]
     Active Substance: TACROLIMUS
     Indication: Renal transplant
     Dosage: FREQUENCY : TWICE A DAY;?
     Route: 048
     Dates: start: 20250808, end: 20250905
  2. MYCOPHENOLATE MOFETIL [Suspect]
     Active Substance: MYCOPHENOLATE MOFETIL
     Indication: Renal transplant
     Dosage: FREQUENCY : TWICE A DAY;?
     Route: 048
     Dates: start: 20250808
  3. FUROSEMIDE [Concomitant]
     Active Substance: FUROSEMIDE
     Dates: start: 20250905
  4. Fosfomycin 3gm Single dose packet [Concomitant]
     Dates: start: 20250905
  5. LANTUS SOLOSTAR [Concomitant]
     Active Substance: INSULIN GLARGINE
     Dates: start: 20250905
  6. Humalog 1 OOU/ML Kwikpen [Concomitant]
     Dates: start: 20250905
  7. Humalog 1OOU/ML Kwikpen [Concomitant]
     Dates: start: 20250905
  8. Carvedilol 25mg tablets [Concomitant]
     Dates: start: 20250905
  9. TRAMADOL HYDROCHLORIDE [Concomitant]
     Active Substance: TRAMADOL HYDROCHLORIDE
     Dates: start: 20250811
  10. PREDNISONE [Concomitant]
     Active Substance: PREDNISONE
     Dates: start: 20250811
  11. Valganciclovir 450mg tablets [Concomitant]
     Dates: start: 20250811
  12. Fluconazole 50mg tablets [Concomitant]
     Dates: start: 20250811

REACTIONS (1)
  - Transplant rejection [None]
